FAERS Safety Report 15484527 (Version 1)
Quarter: 2018Q4

REPORT INFORMATION
  Report Type: Spontaneous
  Country: CA (occurrence: CA)
  Receive Date: 20181010
  Receipt Date: 20181010
  Transmission Date: 20190205
  Serious: Yes (Other)
  Sender: FDA-Public Use
  Company Number: CA-JNJFOC-20181014224

PATIENT

DRUGS (1)
  1. LEVOFLOXACIN. [Suspect]
     Active Substance: LEVOFLOXACIN
     Indication: PROPHYLAXIS
     Route: 065

REACTIONS (8)
  - Anxiety [Unknown]
  - Delusion [Unknown]
  - Agitation [Unknown]
  - Confusional state [Unknown]
  - Personality change [Unknown]
  - Psychotic disorder [Unknown]
  - Delirium [Unknown]
  - Hallucination [Unknown]
